FAERS Safety Report 9693495 (Version 1)
Quarter: 2013Q4

REPORT INFORMATION
  Report Type: Spontaneous
  Country: US (occurrence: US)
  Receive Date: 20131118
  Receipt Date: 20131118
  Transmission Date: 20140711
  Serious: Yes (Other)
  Sender: FDA-Public Use
  Company Number: CHPA2013US017189

PATIENT
  Age: 29 Year
  Sex: Female

DRUGS (1)
  1. PRIVATE LABEL [Suspect]
     Indication: SMOKING CESSATION THERAPY
     Dosage: 21 MG, UNK
     Route: 062
     Dates: start: 20130401, end: 201304

REACTIONS (3)
  - Amnesia [Not Recovered/Not Resolved]
  - Schizophrenia [Not Recovered/Not Resolved]
  - Feeling abnormal [Not Recovered/Not Resolved]
